FAERS Safety Report 7982322-0 (Version None)
Quarter: 2011Q4

REPORT INFORMATION
  Report Type: 
  Country: None (occurrence: None)
  Receive Date: 20111215
  Receipt Date: 20111205
  Transmission Date: 20120403
  Serious: Yes (Other)
  Sender: FDA-Public Use
  Company Number: PHHY2011JP56384

PATIENT
  Sex: Male

DRUGS (6)
  1. AFINITOR [Suspect]
     Indication: METASTATIC RENAL CELL CARCINOMA
     Dosage: 10 MG, DAILY
     Route: 048
     Dates: start: 20110208
  2. HUMALOG [Concomitant]
     Dosage: 60 DF, UNK
     Route: 058
  3. SUNITINIB MALATE [Concomitant]
     Indication: METASTATIC RENAL CELL CARCINOMA
     Dosage: 37.5 MG, UNK
     Route: 048
     Dates: start: 20100622, end: 20110117
  4. CANDESARTAN CILEXETIL [Concomitant]
     Dosage: 8 MG, UNK
     Route: 048
     Dates: start: 20110419
  5. LEVEMIR [Concomitant]
     Dosage: 24 DF, UNK
     Route: 058
  6. APHTASOLON [Concomitant]
     Dates: start: 20110222, end: 20110308

REACTIONS (7)
  - NEOPLASM MALIGNANT [None]
  - HYPERTENSION [None]
  - C-REACTIVE PROTEIN INCREASED [None]
  - ANAEMIA [None]
  - DYSLIPIDAEMIA [None]
  - NEOPLASM PROGRESSION [None]
  - HYPERGLYCAEMIA [None]
